FAERS Safety Report 21305775 (Version 14)
Quarter: 2024Q3

REPORT INFORMATION
  Report Type: Report from Study
  Country: JP (occurrence: JP)
  Receive Date: 20220908
  Receipt Date: 20240707
  Transmission Date: 20241017
  Serious: Yes (Hospitalization)
  Sender: ARGENX BVBA
  Company Number: JP-ARGENX-2022-ARGX-JP001666

PATIENT

DRUGS (9)
  1. EFGARTIGIMOD ALFA [Suspect]
     Active Substance: EFGARTIGIMOD ALFA
     Indication: Myasthenia gravis
     Dosage: 700 MG
     Route: 042
     Dates: start: 20220816, end: 20220826
  2. EFGARTIGIMOD ALFA [Suspect]
     Active Substance: EFGARTIGIMOD ALFA
     Dosage: 700 MG
     Route: 042
     Dates: start: 20221215, end: 20221222
  3. EFGARTIGIMOD ALFA [Suspect]
     Active Substance: EFGARTIGIMOD ALFA
     Dosage: 700 MG
     Route: 042
     Dates: start: 20230216, end: 20230309
  4. EFGARTIGIMOD ALFA [Suspect]
     Active Substance: EFGARTIGIMOD ALFA
     Dosage: 700 MG
     Route: 042
     Dates: start: 20230511, end: 20230601
  5. EFGARTIGIMOD ALFA [Suspect]
     Active Substance: EFGARTIGIMOD ALFA
     Dosage: 600 MG
     Route: 042
     Dates: start: 20230921, end: 20231012
  6. EFGARTIGIMOD ALFA [Suspect]
     Active Substance: EFGARTIGIMOD ALFA
     Dosage: 600 MG
     Route: 042
     Dates: start: 20231130, end: 20231221
  7. PREDNISOLONE [Concomitant]
     Active Substance: PREDNISOLONE
     Indication: Myasthenia gravis
     Dosage: 21 MG
     Route: 048
     Dates: start: 2001
  8. TACROLIMUS [Concomitant]
     Active Substance: TACROLIMUS
     Indication: Myasthenia gravis
     Dosage: 3 MG
     Route: 048
     Dates: start: 200111
  9. REMDESIVIR [Concomitant]
     Active Substance: REMDESIVIR
     Indication: Product used for unknown indication
     Dosage: 200 MG
     Route: 041
     Dates: start: 20230708, end: 20230717

REACTIONS (7)
  - Adenocarcinoma gastric [Recovering/Resolving]
  - Muscular weakness [Recovering/Resolving]
  - Spinal osteoarthritis [Recovering/Resolving]
  - Myasthenia gravis [Recovering/Resolving]
  - COVID-19 [Recovering/Resolving]
  - Myasthenia gravis [Recovering/Resolving]
  - Therapy interrupted [Unknown]

NARRATIVE: CASE EVENT DATE: 20220823
